FAERS Safety Report 5507917-5 (Version None)
Quarter: 2007Q4

REPORT INFORMATION
  Report Type: 
  Country: None (occurrence: None)
  Receive Date: 20071106
  Receipt Date: 20071026
  Transmission Date: 20080405
  Serious: Yes (Other)
  Sender: FDA-Public Use
  Company Number: US-PFIZER INC-2006129300

PATIENT
  Sex: Male
  Weight: 96.2 kg

DRUGS (8)
  1. LIPITOR [Suspect]
     Indication: BLOOD CHOLESTEROL INCREASED
     Route: 048
  2. LIPITOR [Suspect]
     Indication: DYSLIPIDAEMIA
  3. PREVACID [Concomitant]
  4. PRILOSEC [Concomitant]
     Dosage: DAILY DOSE:20MG
     Route: 048
  5. VITAMIN CAP [Concomitant]
  6. VITAMIN B-12 [Concomitant]
  7. VITAMIN B6 [Concomitant]
  8. FOLIC ACID [Concomitant]

REACTIONS (2)
  - DERMATITIS EXFOLIATIVE [None]
  - SKIN EXFOLIATION [None]
